FAERS Safety Report 13273027 (Version 1)
Quarter: 2017Q1

REPORT INFORMATION
  Report Type: Spontaneous
  Country: US (occurrence: US)
  Receive Date: 20170227
  Receipt Date: 20170227
  Transmission Date: 20170428
  Serious: Yes (Death)
  Sender: FDA-Public Use
  Company Number: None

PATIENT
  Age: 70 Year
  Sex: Male

DRUGS (1)
  1. TACROLIMUS 0.5MG [Suspect]
     Active Substance: TACROLIMUS
     Dosage: 0.5MG EVERY MORNING ORAL
     Route: 048
     Dates: start: 20140221

REACTIONS (1)
  - Death [None]

NARRATIVE: CASE EVENT DATE: 201702
